FAERS Safety Report 24630627 (Version 1)
Quarter: 2024Q4

REPORT INFORMATION
  Report Type: Spontaneous
  Country: CA (occurrence: CA)
  Receive Date: 20241118
  Receipt Date: 20241118
  Transmission Date: 20250115
  Serious: Yes (Other)
  Sender: PFIZER
  Company Number: CA-PFIZER INC-202400301135

PATIENT
  Age: 31 Month
  Sex: Female

DRUGS (3)
  1. ABRILADA [Suspect]
     Active Substance: ADALIMUMAB-AFZB
     Indication: Juvenile idiopathic arthritis
     Dosage: 20 MG EVERY 2 WEEKS
     Route: 058
     Dates: start: 20241030
  2. ABRILADA [Suspect]
     Active Substance: ADALIMUMAB-AFZB
     Dosage: 20 MG EVERY 2 WEEKS
     Route: 058
     Dates: start: 20241113
  3. METHOTREXATE [Concomitant]
     Active Substance: METHOTREXATE
     Dosage: 7500 UG, WEEKLY
     Dates: start: 202404

REACTIONS (1)
  - Weight decreased [Not Recovered/Not Resolved]

NARRATIVE: CASE EVENT DATE: 20241113
